FAERS Safety Report 12188270 (Version 1)
Quarter: 2016Q1

REPORT INFORMATION
  Report Type: Spontaneous
  Country: DE (occurrence: JP)
  Receive Date: 20160317
  Receipt Date: 20160317
  Transmission Date: 20160526
  Serious: Yes (Other)
  Sender: FDA-Public Use
  Company Number: JP-FRI-1000083016

PATIENT
  Age: 75 Year
  Sex: Female

DRUGS (2)
  1. MEMANTINE. [Suspect]
     Active Substance: MEMANTINE
     Indication: DEMENTIA ALZHEIMER^S TYPE
     Dosage: 20 MG
     Route: 048
     Dates: start: 20150415, end: 20160106
  2. REMINYL [Concomitant]
     Active Substance: GALANTAMINE

REACTIONS (1)
  - Electrocardiogram QT prolonged [Recovered/Resolved]

NARRATIVE: CASE EVENT DATE: 20151219
